FAERS Safety Report 10709739 (Version 1)
Quarter: 2015Q1

REPORT INFORMATION
  Report Type: Spontaneous
  Country: US (occurrence: US)
  Receive Date: 20150114
  Receipt Date: 20150114
  Transmission Date: 20150721
  Serious: No
  Sender: FDA-Public Use
  Company Number: US-SHIRE-US201500259

PATIENT
  Sex: Male

DRUGS (2)
  1. VYVANSE [Suspect]
     Active Substance: LISDEXAMFETAMINE DIMESYLATE
     Dosage: 50 MG, 1X/DAY:QD, DAILY
     Route: 048
     Dates: start: 201412
  2. VYVANSE [Suspect]
     Active Substance: LISDEXAMFETAMINE DIMESYLATE
     Indication: ATTENTION DEFICIT/HYPERACTIVITY DISORDER
     Dosage: 30 MG, 1X/DAY:QD, DAILY
     Route: 048
     Dates: start: 2014, end: 201412

REACTIONS (3)
  - Memory impairment [Unknown]
  - Drug effect incomplete [Unknown]
  - Hypersexuality [Unknown]

NARRATIVE: CASE EVENT DATE: 2014
